FAERS Safety Report 5563841-3 (Version None)
Quarter: 2007Q4

REPORT INFORMATION
  Report Type: 
  Country: None (occurrence: None)
  Receive Date: 20071217
  Receipt Date: 20070824
  Transmission Date: 20080405
  Serious: No
  Sender: FDA-Public Use
  Company Number: US-ASTRAZENECA-2007UW20294

PATIENT
  Age: 66 Year
  Sex: Female
  Weight: 56.7 kg

DRUGS (4)
  1. CRESTOR [Suspect]
     Indication: DYSLIPIDAEMIA
     Route: 048
     Dates: start: 20070818, end: 20070819
  2. CRESTOR [Suspect]
     Route: 048
     Dates: start: 20070823
  3. AMBIEN [Concomitant]
  4. PREMARIN [Concomitant]

REACTIONS (3)
  - DYSGEUSIA [None]
  - NAUSEA [None]
  - ORAL DISCOMFORT [None]
